FAERS Safety Report 26197946 (Version 1)
Quarter: 2025Q4

REPORT INFORMATION
  Report Type: Spontaneous
  Country: US (occurrence: US)
  Receive Date: 20251224
  Receipt Date: 20251224
  Transmission Date: 20260118
  Serious: Yes (Death, Hospitalization, Other)
  Sender: ALEMBIC
  Company Number: US-ALEMBIC PHARMACUETICALS LIMITED-2025SCAL001832

PATIENT

DRUGS (1)
  1. LINEZOLID [Suspect]
     Active Substance: LINEZOLID
     Indication: Osteomyelitis
     Dosage: UNK
     Route: 065

REACTIONS (21)
  - Lactic acidosis [Fatal]
  - Multiple organ dysfunction syndrome [Fatal]
  - Abdominal pain [Fatal]
  - Back pain [Fatal]
  - Respiratory failure [Fatal]
  - Pancreatitis [Fatal]
  - Cholelithiasis [Fatal]
  - Colitis [Fatal]
  - Thrombocytopenia [Fatal]
  - Fibrin D dimer increased [Fatal]
  - Sinus tachycardia [Fatal]
  - Blood lactic acid increased [Fatal]
  - Blood bicarbonate decreased [Fatal]
  - Blood pH increased [Fatal]
  - Anion gap increased [Fatal]
  - Blood creatinine increased [Fatal]
  - Troponin I increased [Fatal]
  - Lipase increased [Fatal]
  - Amylase increased [Fatal]
  - Cardio-respiratory arrest [Fatal]
  - Toxicity to various agents [Fatal]
